FAERS Safety Report 24833007 (Version 1)
Quarter: 2025Q1

REPORT INFORMATION
  Report Type: Spontaneous
  Country: FR (occurrence: FR)
  Receive Date: 20250111
  Receipt Date: 20250111
  Transmission Date: 20250408
  Serious: Yes (Other)
  Sender: AMGEN
  Company Number: FR-AMGEN-FRASP2025000563

PATIENT

DRUGS (1)
  1. ADALIMUMAB [Suspect]
     Active Substance: ADALIMUMAB
     Indication: Inflammatory bowel disease
     Route: 065

REACTIONS (7)
  - Abortion spontaneous [Unknown]
  - Ectopic pregnancy [Unknown]
  - Benign hydatidiform mole [Unknown]
  - Abortion induced [Unknown]
  - Caesarean section [Unknown]
  - Premature delivery [Unknown]
  - Maternal exposure during pregnancy [Unknown]
